FAERS Safety Report 7680954-0 (Version None)
Quarter: 2011Q3

REPORT INFORMATION
  Report Type: 
  Country: None (occurrence: None)
  Receive Date: 20110811
  Receipt Date: 20110811
  Transmission Date: 20111222
  Serious: No
  Sender: FDA-Public Use
  Company Number: None

PATIENT
  Age: 57 Year
  Sex: Male

DRUGS (2)
  1. GEMFIBROZIL [Suspect]
     Dates: start: 20040515, end: 20091021
  2. AMIODARONE HCL [Suspect]
     Dates: start: 20061117, end: 20091021

REACTIONS (15)
  - LIVER DISORDER [None]
  - ALANINE AMINOTRANSFERASE INCREASED [None]
  - HEPATIC STEATOSIS [None]
  - LIVER INJURY [None]
  - ASPARTATE AMINOTRANSFERASE INCREASED [None]
  - BLOOD CREATINE PHOSPHOKINASE INCREASED [None]
  - PORTAL TRIADITIS [None]
  - DELIRIUM [None]
  - RENAL INJURY [None]
  - HEPATITIS CHOLESTATIC [None]
  - CARDIAC ARREST [None]
  - CELLULITIS [None]
  - BLOOD ALKALINE PHOSPHATASE INCREASED [None]
  - HYPOXIC-ISCHAEMIC ENCEPHALOPATHY [None]
  - HEPATIC FIBROSIS [None]
